FAERS Safety Report 10444611 (Version 1)
Quarter: 2014Q3

REPORT INFORMATION
  Report Type: Spontaneous
  Country: US (occurrence: None)
  Receive Date: 20140909
  Receipt Date: 20140909
  Transmission Date: 20150326
  Serious: No
  Sender: FDA-Public Use
  Company Number: None

PATIENT
  Age: 27 Year
  Sex: Male
  Weight: 104.33 kg

DRUGS (2)
  1. PANTOPRAZOLE [Suspect]
     Active Substance: PANTOPRAZOLE SODIUM
     Indication: GASTROOESOPHAGEAL REFLUX DISEASE
     Route: 048
  2. PANTOPRAZOLE [Suspect]
     Active Substance: PANTOPRAZOLE SODIUM
     Indication: DYSPEPSIA
     Route: 048

REACTIONS (8)
  - Dysgeusia [None]
  - Aspiration [None]
  - Bronchospasm [None]
  - Product substitution issue [None]
  - Drug ineffective [None]
  - Oropharyngeal pain [None]
  - Oesophageal spasm [None]
  - Product quality issue [None]

NARRATIVE: CASE EVENT DATE: 20140908
